FAERS Safety Report 7197838-7 (Version None)
Quarter: 2010Q4

REPORT INFORMATION
  Report Type: 
  Country: None (occurrence: None)
  Receive Date: 20101227
  Receipt Date: 20101220
  Transmission Date: 20110411
  Serious: Yes (Hospitalization)
  Sender: FDA-Public Use
  Company Number: US-ROCHE-477581

PATIENT
  Sex: Male
  Weight: 60.8 kg

DRUGS (19)
  1. BEVACIZUMAB [Suspect]
     Indication: NON-SMALL CELL LUNG CANCER
     Route: 042
     Dates: start: 20061030, end: 20061129
  2. ERLOTINIB [Suspect]
     Indication: NON-SMALL CELL LUNG CANCER
     Route: 048
     Dates: start: 20061030, end: 20061205
  3. RELAFEN [Concomitant]
  4. DURAGESIC-50 [Concomitant]
     Dosage: DRUG REPORTED AS DURAGESIC PATCH. GENERIC NAME REOPRTED AS FENTANYL CITRATE.
     Dates: start: 20060706
  5. NORCO [Concomitant]
     Dosage: GENERIC NAME REPORTED AS ACETAMINOPHEN, HYDROCODONE BITARTRATE.
  6. PREVACID [Concomitant]
     Dates: start: 20061012
  7. COMPAZINE [Concomitant]
  8. METOPROLOL TARTRATE [Concomitant]
     Dates: end: 20061110
  9. LASIX [Concomitant]
     Dates: start: 20060803
  10. ASPIRIN [Concomitant]
     Dates: start: 20061113
  11. VIBRAMYCIN [Concomitant]
     Dates: start: 20061120
  12. NEOSPORIN [Concomitant]
     Dosage: GENERIC NAME REPORTED AS BACTRACIN ZINC, NEOMYCIN SULFATE, POLYMYXIN B SULFATE.
     Dates: start: 20061120
  13. ZOMETA [Concomitant]
     Dates: start: 20060706
  14. VICODIN [Concomitant]
     Dosage: GENERIC NAME REPORTED AS ACETAMINOPHEN, HYDROCODONE BITARTRATE.
  15. ZANTAC [Concomitant]
  16. NEURONTIN [Concomitant]
  17. ZETIA [Concomitant]
  18. MEGACE [Concomitant]
     Dosage: GENERIC NAME REPORTED AS MEGESTROL ACETATE.
  19. MORPHINE SULFATE [Concomitant]

REACTIONS (5)
  - CONFUSIONAL STATE [None]
  - METASTASES TO LUNG [None]
  - PARAESTHESIA [None]
  - SPEECH DISORDER [None]
  - TRANSIENT ISCHAEMIC ATTACK [None]
